FAERS Safety Report 7462547-3 (Version None)
Quarter: 2011Q2

REPORT INFORMATION
  Report Type: 
  Country: None (occurrence: None)
  Receive Date: 20110506
  Receipt Date: 20110502
  Transmission Date: 20111010
  Serious: Yes (Other)
  Sender: FDA-Public Use
  Company Number: US-SANOFI-AVENTIS-2011SA004134

PATIENT
  Age: 69 Year
  Sex: Female

DRUGS (8)
  1. TRICOR [Concomitant]
  2. LORAZEPAM [Concomitant]
     Indication: ANXIETY
  3. LEVOTHYROXINE SODIUM [Concomitant]
     Indication: THYROID DISORDER
  4. TIMOPTIC [Concomitant]
     Indication: GLAUCOMA
     Dosage: ONE DROP TWICE A DAY
  5. CLOPIDOGREL BISULFATE [Suspect]
     Route: 048
     Dates: start: 20090101, end: 20110111
  6. TRAZODONE [Concomitant]
  7. SIMVASTATIN [Concomitant]
  8. METOPROLOL [Concomitant]
     Indication: BLOOD PRESSURE

REACTIONS (3)
  - PRODUCT QUALITY ISSUE [None]
  - ABDOMINAL PAIN UPPER [None]
  - HAEMATEMESIS [None]
